FAERS Safety Report 25143968 (Version 1)
Quarter: 2025Q2

REPORT INFORMATION
  Report Type: Spontaneous
  Country: US (occurrence: US)
  Receive Date: 20250401
  Receipt Date: 20250401
  Transmission Date: 20250716
  Serious: Yes (Hospitalization, Other)
  Sender: TAKEDA
  Company Number: US-TAKEDA-2025TUS031334

PATIENT
  Age: 41 Year
  Sex: Female

DRUGS (3)
  1. COLCHICINE [Interacting]
     Active Substance: COLCHICINE
     Indication: Product used for unknown indication
  2. ATORVASTATIN [Interacting]
     Active Substance: ATORVASTATIN
     Indication: Product used for unknown indication
  3. LUPKYNIS [Interacting]
     Active Substance: VOCLOSPORIN
     Indication: Lupus nephritis
     Dosage: 23.7 MILLIGRAM, BID
     Dates: start: 20211008

REACTIONS (4)
  - Myocardial infarction [Unknown]
  - Myalgia [Unknown]
  - Labelled drug-drug interaction issue [Unknown]
  - Vomiting [Unknown]
